FAERS Safety Report 17824454 (Version 1)
Quarter: 2020Q2

REPORT INFORMATION
  Report Type: Spontaneous
  Country: US (occurrence: US)
  Receive Date: 20200522
  Receipt Date: 20200522
  Transmission Date: 20200714
  Serious: Yes (Hospitalization)
  Sender: FDA-Public Use
  Company Number: None

PATIENT
  Age: 67 Year
  Sex: Male
  Weight: 119 kg

DRUGS (2)
  1. VALPROIC ACID (VALPROIC ACID 250MG CAP) [Suspect]
     Active Substance: VALPROIC ACID
     Indication: POST-TRAUMATIC STRESS DISORDER
     Route: 048
     Dates: start: 20200505, end: 20200516
  2. VALPROIC ACID (VALPROIC ACID 250MG CAP) [Suspect]
     Active Substance: VALPROIC ACID
     Indication: ANXIETY
     Route: 048
     Dates: start: 20200505, end: 20200516

REACTIONS (4)
  - Confusional state [None]
  - Hyperammonaemia [None]
  - Agitation [None]
  - Mental status changes [None]

NARRATIVE: CASE EVENT DATE: 20200516
